FAERS Safety Report 25808800 (Version 1)
Quarter: 2025Q3

REPORT INFORMATION
  Report Type: Spontaneous
  Country: CN (occurrence: CN)
  Receive Date: 20250916
  Receipt Date: 20250916
  Transmission Date: 20251021
  Serious: Yes (Other)
  Sender: MYLAN
  Company Number: CN-MYLANLABS-2025M1078324

PATIENT
  Age: 64 Year
  Sex: Female

DRUGS (24)
  1. CELEBREX [Suspect]
     Active Substance: CELECOXIB
     Indication: Pelvic fracture
     Dosage: 0.2 GRAM, QD (AFTER MEALS)
     Dates: start: 20250728, end: 20250730
  2. CELEBREX [Suspect]
     Active Substance: CELECOXIB
     Indication: Analgesic therapy
     Dosage: 0.2 GRAM, QD (AFTER MEALS)
     Dates: start: 20250728, end: 20250730
  3. CELEBREX [Suspect]
     Active Substance: CELECOXIB
     Dosage: 0.2 GRAM, QD (AFTER MEALS)
     Route: 048
     Dates: start: 20250728, end: 20250730
  4. CELEBREX [Suspect]
     Active Substance: CELECOXIB
     Dosage: 0.2 GRAM, QD (AFTER MEALS)
     Route: 048
     Dates: start: 20250728, end: 20250730
  5. CELEBREX [Suspect]
     Active Substance: CELECOXIB
     Dosage: 0.2 GRAM, QD (AFTER MEALS)
     Dates: start: 20250803, end: 20250813
  6. CELEBREX [Suspect]
     Active Substance: CELECOXIB
     Dosage: 0.2 GRAM, QD (AFTER MEALS)
     Dates: start: 20250803, end: 20250813
  7. CELEBREX [Suspect]
     Active Substance: CELECOXIB
     Dosage: 0.2 GRAM, QD (AFTER MEALS)
     Route: 048
     Dates: start: 20250803, end: 20250813
  8. CELEBREX [Suspect]
     Active Substance: CELECOXIB
     Dosage: 0.2 GRAM, QD (AFTER MEALS)
     Route: 048
     Dates: start: 20250803, end: 20250813
  9. PARECOXIB SODIUM [Suspect]
     Active Substance: PARECOXIB SODIUM
     Indication: Pelvic fracture
     Dosage: 40 MILLIGRAM, BID
     Dates: start: 20250725, end: 20250727
  10. PARECOXIB SODIUM [Suspect]
     Active Substance: PARECOXIB SODIUM
     Indication: Analgesic therapy
     Dosage: 40 MILLIGRAM, BID
     Dates: start: 20250725, end: 20250727
  11. PARECOXIB SODIUM [Suspect]
     Active Substance: PARECOXIB SODIUM
     Dosage: 40 MILLIGRAM, BID
     Route: 042
     Dates: start: 20250725, end: 20250727
  12. PARECOXIB SODIUM [Suspect]
     Active Substance: PARECOXIB SODIUM
     Dosage: 40 MILLIGRAM, BID
     Route: 042
     Dates: start: 20250725, end: 20250727
  13. PARECOXIB SODIUM [Suspect]
     Active Substance: PARECOXIB SODIUM
     Dosage: 40 MILLIGRAM, BID
     Dates: start: 20250731, end: 20250802
  14. PARECOXIB SODIUM [Suspect]
     Active Substance: PARECOXIB SODIUM
     Dosage: 40 MILLIGRAM, BID
     Dates: start: 20250731, end: 20250802
  15. PARECOXIB SODIUM [Suspect]
     Active Substance: PARECOXIB SODIUM
     Dosage: 40 MILLIGRAM, BID
     Route: 042
     Dates: start: 20250731, end: 20250802
  16. PARECOXIB SODIUM [Suspect]
     Active Substance: PARECOXIB SODIUM
     Dosage: 40 MILLIGRAM, BID
     Route: 042
     Dates: start: 20250731, end: 20250802
  17. SODIUM CHLORIDE [Suspect]
     Active Substance: SODIUM CHLORIDE
     Indication: Analgesic therapy
     Dates: start: 20250725, end: 20250727
  18. SODIUM CHLORIDE [Suspect]
     Active Substance: SODIUM CHLORIDE
     Dates: start: 20250725, end: 20250727
  19. SODIUM CHLORIDE [Suspect]
     Active Substance: SODIUM CHLORIDE
     Route: 042
     Dates: start: 20250725, end: 20250727
  20. SODIUM CHLORIDE [Suspect]
     Active Substance: SODIUM CHLORIDE
     Route: 042
     Dates: start: 20250725, end: 20250727
  21. SODIUM CHLORIDE [Suspect]
     Active Substance: SODIUM CHLORIDE
     Dates: start: 20250731, end: 20250802
  22. SODIUM CHLORIDE [Suspect]
     Active Substance: SODIUM CHLORIDE
     Dates: start: 20250731, end: 20250802
  23. SODIUM CHLORIDE [Suspect]
     Active Substance: SODIUM CHLORIDE
     Route: 042
     Dates: start: 20250731, end: 20250802
  24. SODIUM CHLORIDE [Suspect]
     Active Substance: SODIUM CHLORIDE
     Route: 042
     Dates: start: 20250731, end: 20250802

REACTIONS (1)
  - Acute coronary syndrome [Recovering/Resolving]

NARRATIVE: CASE EVENT DATE: 20250805
